FAERS Safety Report 5153978-5 (Version None)
Quarter: 2006Q4

REPORT INFORMATION
  Report Type: 
  Country: None (occurrence: None)
  Receive Date: 20061120
  Receipt Date: 20061016
  Transmission Date: 20070319
  Serious: Yes (Other)
  Sender: FDA-Public Use
  Company Number: US-GLAXOSMITHKLINE-A0623784A

PATIENT
  Age: 59 Year
  Sex: Female

DRUGS (1)
  1. ADVAIR DISKUS 100/50 [Suspect]
     Indication: COUGH
     Route: 055
     Dates: start: 20061005, end: 20061011

REACTIONS (6)
  - ADVERSE DRUG REACTION [None]
  - BLISTER [None]
  - ERYTHEMA [None]
  - PAIN IN EXTREMITY [None]
  - PRURITUS [None]
  - SKIN EXFOLIATION [None]
